FAERS Safety Report 16525373 (Version 1)
Quarter: 2019Q3

REPORT INFORMATION
  Report Type: Report from Study
  Country: CR (occurrence: CR)
  Receive Date: 20190703
  Receipt Date: 20190703
  Transmission Date: 20191004
  Serious: Yes (Other)
  Sender: FDA-Public Use
  Company Number: PHHY2017CR176918

PATIENT
  Age: 34 Year
  Sex: Male

DRUGS (3)
  1. AFINITOR [Suspect]
     Active Substance: EVEROLIMUS
     Indication: PRODUCT USED FOR UNKNOWN INDICATION
     Dosage: UNK
     Route: 065
  2. SANDOSTATIN LAR DEPOT [Suspect]
     Active Substance: OCTREOTIDE ACETATE
     Indication: PRODUCT USED FOR UNKNOWN INDICATION
     Dosage: UNK
     Route: 065
  3. ZOMETA [Suspect]
     Active Substance: ZOLEDRONIC ACID
     Indication: PRODUCT USED FOR UNKNOWN INDICATION
     Route: 065

REACTIONS (13)
  - Tongue blistering [Unknown]
  - Blood cholesterol abnormal [Unknown]
  - Diarrhoea [Unknown]
  - Dyspnoea [Unknown]
  - Platelet count decreased [Unknown]
  - Influenza [Unknown]
  - Lip blister [Unknown]
  - Gastrooesophageal reflux disease [Unknown]
  - Respiratory tract infection [Unknown]
  - Abdominal discomfort [Unknown]
  - Vomiting [Unknown]
  - Lung disorder [Unknown]
  - Fatigue [Unknown]
